FAERS Safety Report 4760598-0 (Version None)
Quarter: 2005Q3

REPORT INFORMATION
  Report Type: 
  Country: None (occurrence: None)
  Receive Date: 20050902
  Receipt Date: 20050829
  Transmission Date: 20060218
  Serious: Yes (Death, Life-Threatening)
  Sender: FDA-Public Use
  Company Number: US-MERCK-0508USA04432

PATIENT
  Age: 78 Year
  Sex: Male

DRUGS (7)
  1. VIOXX [Suspect]
     Indication: PAIN IN EXTREMITY
     Route: 048
  2. FUROSEMIDE [Concomitant]
     Route: 065
  3. FOLIC ACID [Concomitant]
     Route: 065
  4. PREDNISONE [Concomitant]
     Route: 065
  5. ATENOLOL MSD [Concomitant]
     Route: 065
  6. NORVASC [Concomitant]
     Route: 065
  7. COUMADIN [Concomitant]
     Route: 065

REACTIONS (1)
  - MYOCARDIAL INFARCTION [None]
